FAERS Safety Report 7347175-2 (Version None)
Quarter: 2011Q1

REPORT INFORMATION
  Report Type: 
  Country: None (occurrence: None)
  Receive Date: 20110311
  Receipt Date: 20110308
  Transmission Date: 20110831
  Serious: Yes (Other)
  Sender: FDA-Public Use
  Company Number: FR-PFIZER INC-2011028918

PATIENT
  Age: 58 Year
  Sex: Female

DRUGS (6)
  1. AMLOR [Suspect]
     Indication: HYPERTENSION
     Dosage: 1 DF, 1X/DAY
     Route: 048
     Dates: start: 19951222
  2. DIAMICRON [Suspect]
     Indication: TYPE 2 DIABETES MELLITUS
     Dosage: 1 DF, 3X/DAY
     Route: 048
     Dates: start: 19951222, end: 20090615
  3. MEDIATOR [Suspect]
     Indication: TYPE 2 DIABETES MELLITUS
     Dosage: 1 DF, 3X/DAY
     Route: 048
     Dates: start: 19951222, end: 20090615
  4. ALLOPURINOL [Suspect]
     Indication: HYPERURICAEMIA
     Dosage: 1 DF, 1X/DAY
     Route: 048
     Dates: start: 19860101
  5. LOPRESSOR [Suspect]
     Indication: HYPERTENSION
     Dosage: 1 DF, 1X/DAY
     Route: 048
     Dates: start: 19951222
  6. EURELIX [Suspect]
     Dosage: 1 DF, 1X/DAY
     Route: 048
     Dates: start: 19960101

REACTIONS (10)
  - ASTHENIA [None]
  - GAIT DISTURBANCE [None]
  - DIZZINESS [None]
  - FATIGUE [None]
  - BUNDLE BRANCH BLOCK RIGHT [None]
  - DYSPNOEA [None]
  - FALL [None]
  - SUPRAVENTRICULAR EXTRASYSTOLES [None]
  - MOBILITY DECREASED [None]
  - VERTIGO [None]
